FAERS Safety Report 9616572 (Version 1)
Quarter: 2013Q4

REPORT INFORMATION
  Report Type: Spontaneous
  Country: IT (occurrence: IT)
  Receive Date: 20131011
  Receipt Date: 20131011
  Transmission Date: 20140711
  Serious: Yes (Other)
  Sender: FDA-Public Use
  Company Number: IT-TAKEDA-2013TEU000976

PATIENT
  Sex: 0

DRUGS (2)
  1. LANSOX [Suspect]
     Indication: ABDOMINAL PAIN UPPER
     Dosage: 30 MG TOTAL
     Route: 048
     Dates: start: 20130916, end: 20130916
  2. TAREG [Concomitant]

REACTIONS (3)
  - Dermatitis allergic [Recovering/Resolving]
  - Rash [None]
  - Localised oedema [None]
